FAERS Safety Report 20103218 (Version 1)
Quarter: 2021Q4

REPORT INFORMATION
  Report Type: Spontaneous
  Country: US (occurrence: US)
  Receive Date: 20211123
  Receipt Date: 20211123
  Transmission Date: 20220303
  Serious: No
  Sender: FDA-Public Use
  Company Number: US-Fresenius Medical Care Renal Therapies Group-FMC-2111-001755

PATIENT
  Age: 82 Year
  Sex: Female
  Weight: 57.431 kg

DRUGS (2)
  1. DELFLEX WITH DEXTROSE 1.5% LOW MAGNESIUM LOW CALCIUM [Suspect]
     Active Substance: CALCIUM CHLORIDE\DEXTROSE\MAGNESIUM CHLORIDE\SODIUM CHLORIDE\SODIUM LACTATE
     Indication: End stage renal disease
     Dosage: 2000ML FILL VOLUME, TREATMENT TIME 8 AND A HALF HOURS AND NO DAYTIME EXCHANGE.
     Route: 033
  2. DELFLEX WITH DEXTROSE 2.5% LOW MAGNESIUM LOW CALCIUM [Suspect]
     Active Substance: CALCIUM CHLORIDE\DEXTROSE\MAGNESIUM CHLORIDE\SODIUM CHLORIDE\SODIUM LACTATE
     Indication: End stage renal disease
     Dosage: 2000ML FILL VOLUME, TREATMENT TIME 8 AND A HALF HOURS AND NO DAYTIME EXCHANGE.
     Route: 033

REACTIONS (3)
  - Chest discomfort [Unknown]
  - Catheter site rash [Unknown]
  - Abdominal distension [Recovered/Resolved]
